FAERS Safety Report 11619400 (Version 3)
Quarter: 2015Q4

REPORT INFORMATION
  Report Type: Spontaneous
  Country: JP (occurrence: JP)
  Receive Date: 20151012
  Receipt Date: 20151230
  Transmission Date: 20160304
  Serious: Yes (Hospitalization)
  Sender: FDA-Public Use
  Company Number: JP-JNJFOC-20151005629

PATIENT
  Age: 74 Year
  Sex: Male
  Weight: 67.3 kg

DRUGS (11)
  1. FEBUXOSTAT. [Suspect]
     Active Substance: FEBUXOSTAT
     Indication: HYPERURICAEMIA
     Route: 048
     Dates: start: 20150601, end: 20150904
  2. XARELTO [Suspect]
     Active Substance: RIVAROXABAN
     Indication: CEREBROVASCULAR ACCIDENT PROPHYLAXIS
     Route: 048
     Dates: start: 20130930, end: 20150904
  3. VERAPAMIL HYDROCHLORIDE. [Concomitant]
     Active Substance: VERAPAMIL HYDROCHLORIDE
     Indication: HEART RATE ABNORMAL
     Route: 048
     Dates: start: 20050111
  4. SELARA [Concomitant]
     Active Substance: EPLERENONE
     Indication: CARDIAC FAILURE
     Route: 048
     Dates: start: 20140714
  5. DIGOXINE [Concomitant]
     Active Substance: DIGOXIN
     Indication: HEART RATE ABNORMAL
     Route: 048
     Dates: start: 20131209
  6. SELARA [Concomitant]
     Active Substance: EPLERENONE
     Indication: HYPERTENSION
     Route: 048
     Dates: start: 20140714
  7. TRIAZOLAM. [Concomitant]
     Active Substance: TRIAZOLAM
     Indication: INSOMNIA
     Route: 048
  8. XARELTO [Suspect]
     Active Substance: RIVAROXABAN
     Indication: THROMBOSIS PROPHYLAXIS
     Route: 048
     Dates: start: 20130930, end: 20150904
  9. TENORMIN [Concomitant]
     Active Substance: ATENOLOL
     Indication: HEART RATE ABNORMAL
     Route: 048
     Dates: start: 20060814, end: 20150904
  10. XARELTO [Suspect]
     Active Substance: RIVAROXABAN
     Indication: ATRIAL FIBRILLATION
     Route: 048
     Dates: start: 20130930, end: 20150904
  11. LASIX [Concomitant]
     Active Substance: FUROSEMIDE
     Indication: CARDIAC FAILURE CONGESTIVE
     Route: 048
     Dates: start: 20140312

REACTIONS (1)
  - Interstitial lung disease [Recovered/Resolved]

NARRATIVE: CASE EVENT DATE: 20150823
